FAERS Safety Report 10797601 (Version 2)
Quarter: 2015Q1

REPORT INFORMATION
  Report Type: Spontaneous
  Country: US (occurrence: US)
  Receive Date: 20150216
  Receipt Date: 20150328
  Transmission Date: 20150721
  Serious: No
  Sender: FDA-Public Use
  Company Number: US-009507513-1502USA006377

PATIENT

DRUGS (7)
  1. REBETOL [Suspect]
     Active Substance: RIBAVIRIN
     Indication: HEPATITIS C
     Dosage: 200 MG, BID, ALSO TITRATED TO A MAXIMUN DOSE OF 1000 MG/DAY
     Route: 048
  2. PEGASYS [Suspect]
     Active Substance: PEGINTERFERON ALFA-2A
     Indication: HEPATITIS C
     Dosage: 90 MICROGRAM, QW ALSO TITRATED TO A MAXIMUM DOSE OF 180 UG/WEEK
     Route: 058
  3. MYCOPHENOLATE MOFETIL. [Concomitant]
     Active Substance: MYCOPHENOLATE MOFETIL
  4. REBETOL [Suspect]
     Active Substance: RIBAVIRIN
     Dosage: TITRATED TO A MAXIMUM OF 1000 MG PER DAY (200 MG, 2 IN 1 D)
  5. PEGASYS [Suspect]
     Active Substance: PEGINTERFERON ALFA-2A
     Dosage: TITRATED TO A MAXIMUM OF 180 MICROGRAM PER WEEK (90 UG, 1 IN 1 WEEK)
  6. VICTRELIS [Suspect]
     Active Substance: BOCEPREVIR
     Indication: HEPATITIS C
     Dosage: WEEK 5: 800 MG THREE TIMES DAILY FOR 44 WEEKS OF TRIPLE THERAPY
     Route: 048
  7. CYCLOSPORINE. [Concomitant]
     Active Substance: CYCLOSPORINE

REACTIONS (1)
  - Anaemia [Unknown]
